FAERS Safety Report 10108825 (Version 2)
Quarter: 2014Q2

REPORT INFORMATION
  Report Type: Spontaneous
  Country: US (occurrence: US)
  Receive Date: 20140425
  Receipt Date: 20140430
  Transmission Date: 20141212
  Serious: Yes (Other)
  Sender: FDA-Public Use
  Company Number: US-TEVA-477499USA

PATIENT
  Sex: 0

DRUGS (2)
  1. SUCRALFATE [Suspect]
  2. VITAMIN D [Suspect]

REACTIONS (4)
  - Coeliac disease [Unknown]
  - Food allergy [Unknown]
  - Food allergy [Unknown]
  - Cow^s milk intolerance [Unknown]
